FAERS Safety Report 5270401-0 (Version None)
Quarter: 2007Q1

REPORT INFORMATION
  Report Type: 
  Country: None (occurrence: None)
  Receive Date: 20070320
  Receipt Date: 20070308
  Transmission Date: 20070707
  Serious: Yes (Other)
  Sender: FDA-Public Use
  Company Number: BR-PFIZER INC-2007018624

PATIENT
  Sex: Female

DRUGS (3)
  1. DEPO-PROVERA [Suspect]
     Indication: CONTRACEPTION
     Dates: start: 20020318, end: 20020318
  2. DEPO-PROVERA [Suspect]
     Dates: start: 20050301, end: 20050301
  3. DEPO-PROVERA [Suspect]
     Dates: start: 20070202, end: 20070202

REACTIONS (9)
  - DIZZINESS [None]
  - LIBIDO DECREASED [None]
  - MENORRHAGIA [None]
  - MENSTRUATION IRREGULAR [None]
  - MIGRAINE [None]
  - PAIN IN EXTREMITY [None]
  - PREMENSTRUAL SYNDROME [None]
  - VERTIGO [None]
  - VULVOVAGINAL DRYNESS [None]
